FAERS Safety Report 11129096 (Version 2)
Quarter: 2015Q4

REPORT INFORMATION
  Report Type: Spontaneous
  Country: US (occurrence: US)
  Receive Date: 20150521
  Receipt Date: 20151130
  Transmission Date: 20160304
  Serious: Yes (Other)
  Sender: FDA-Public Use
  Company Number: US-PFIZER INC-2015167879

PATIENT
  Age: 57 Year
  Sex: Female
  Weight: 56.7 kg

DRUGS (15)
  1. PRILOSEC [Concomitant]
     Active Substance: OMEPRAZOLE MAGNESIUM
     Dosage: UNK
  2. TRIPLE FISH OIL [Concomitant]
     Indication: CARDIAC DISORDER
  3. LYRICA [Suspect]
     Active Substance: PREGABALIN
     Indication: NEUROPATHY PERIPHERAL
     Dosage: 225 MG, 2X/DAY (ONE IN MORNING AND ONE AT NIGHT)
  4. ASPIRIN. [Concomitant]
     Active Substance: ASPIRIN
     Dosage: 325 MG, DAILY
  5. PLAVIX [Concomitant]
     Active Substance: CLOPIDOGREL BISULFATE
     Indication: CARDIAC DISORDER
     Dosage: 75 MG, DAILY
  6. VITAMIN D [Concomitant]
     Active Substance: CHOLECALCIFEROL
     Dosage: UNK
  7. LYRICA [Suspect]
     Active Substance: PREGABALIN
     Indication: BURNING SENSATION
     Dosage: UNK, AS NEEDED
  8. TRIPLE FISH OIL [Concomitant]
     Indication: EYE DISORDER
     Dosage: UNK
  9. HYDROCODONE [Suspect]
     Active Substance: HYDROCODONE
     Dosage: UNK
  10. ASPIRIN. [Concomitant]
     Active Substance: ASPIRIN
     Indication: ANTICOAGULANT THERAPY
     Dosage: 325 MG, UNK
  11. PREVACID [Concomitant]
     Active Substance: LANSOPRAZOLE
     Indication: OESOPHAGEAL DISORDER
     Dosage: 30 MG, UNK
  12. LYRICA [Suspect]
     Active Substance: PREGABALIN
     Indication: NEURALGIA
     Dosage: UNK, 1X/DAY
  13. HUMALOG [Concomitant]
     Active Substance: INSULIN LISPRO
     Indication: TYPE 1 DIABETES MELLITUS
     Dosage: UNK
  14. LYRICA [Suspect]
     Active Substance: PREGABALIN
     Dosage: 225 MG, 2X/DAY
  15. PREVACID [Concomitant]
     Active Substance: LANSOPRAZOLE
     Dosage: UNK, 2X/DAY (ONCE IN MORNING AND ONCE AT NIGHT)

REACTIONS (7)
  - Blood glucose increased [Unknown]
  - Hypotension [Unknown]
  - Malaise [Unknown]
  - Nasopharyngitis [Unknown]
  - Wrist fracture [Unknown]
  - Bronchitis [Recovered/Resolved]
  - Paraesthesia [Unknown]

NARRATIVE: CASE EVENT DATE: 2015
